FAERS Safety Report 7042411-4 (Version None)
Quarter: 2010Q4

REPORT INFORMATION
  Report Type: 
  Country: None (occurrence: None)
  Receive Date: 20101013
  Receipt Date: 20100301
  Transmission Date: 20110411
  Serious: No
  Sender: FDA-Public Use
  Company Number: US-ASTRAZENECA-2010SE09043

PATIENT
  Age: 80 Year
  Sex: Male

DRUGS (3)
  1. SYMBICORT [Suspect]
     Indication: CHRONIC OBSTRUCTIVE PULMONARY DISEASE
     Dosage: 160/4.5 UG ONE PUFF IN THE MORNING AND ONE AT NIGHT
     Route: 055
     Dates: start: 20091101
  2. ALBUTEROL [Concomitant]
     Dosage: AS REQUIRED
     Route: 065
  3. IPRATROPIUM BROMIDE [Concomitant]
     Dosage: AS REQUIRED
     Route: 065

REACTIONS (3)
  - HERPES ZOSTER [None]
  - PNEUMONIA [None]
  - WEIGHT DECREASED [None]
